FAERS Safety Report 16933423 (Version 1)
Quarter: 2019Q4

REPORT INFORMATION
  Report Type: Spontaneous
  Country: US (occurrence: US)
  Receive Date: 20191018
  Receipt Date: 20191018
  Transmission Date: 20200122
  Serious: No
  Sender: FDA-Public Use
  Company Number: US-B.I. PHARMACEUTICALS,INC./RIDGEFIELD-2019-US-107185

PATIENT
  Sex: Male

DRUGS (1)
  1. JARDIANCE [Suspect]
     Active Substance: EMPAGLIFLOZIN
     Indication: PRODUCT USED FOR UNKNOWN INDICATION
     Dosage: JARDIANCE 10MG ON MONDAY, WEDNESDAY AND FRIDAYS ONLY
     Route: 065

REACTIONS (3)
  - Weight decreased [Unknown]
  - Glycosylated haemoglobin decreased [Unknown]
  - Renal impairment [Unknown]
